FAERS Safety Report 7190415-3 (Version None)
Quarter: 2010Q4

REPORT INFORMATION
  Report Type: 
  Country: None (occurrence: None)
  Receive Date: 20101223
  Receipt Date: 20101214
  Transmission Date: 20110411
  Serious: Yes (Other)
  Sender: FDA-Public Use
  Company Number: US-ELI_LILLY_AND_COMPANY-US201010003977

PATIENT
  Sex: Female

DRUGS (4)
  1. HUMULIN R [Suspect]
     Indication: DIABETES MELLITUS
     Dosage: 13 U, EACH MORNING
     Dates: start: 19900101
  2. HUMULIN R [Suspect]
     Dosage: 23 U, EACH EVENING
     Dates: start: 19900101
  3. HUMULIN N [Suspect]
     Indication: DIABETES MELLITUS
     Dosage: 23 U, EACH MORNING
  4. HUMULIN N [Suspect]
     Dosage: 26 U, EACH EVENING

REACTIONS (4)
  - ANKLE FRACTURE [None]
  - DRUG DISPENSING ERROR [None]
  - DYSGRAPHIA [None]
  - GLAUCOMA [None]
